FAERS Safety Report 8917199 (Version 3)
Quarter: 2013Q1

REPORT INFORMATION
  Report Type: Spontaneous
  Country: GB (occurrence: GB)
  Receive Date: 20121120
  Receipt Date: 20130117
  Transmission Date: 20140127
  Serious: Yes (Death, Hospitalization)
  Sender: FDA-Public Use
  Company Number: PHFR2012GB005959

PATIENT
  Age: 23 Year
  Sex: Male

DRUGS (1)
  1. TOBI PODHALER [Suspect]
     Indication: CYSTIC FIBROSIS

REACTIONS (3)
  - Burkholderia cepacia complex infection [Fatal]
  - Infection [Unknown]
  - Malaise [Unknown]
